FAERS Safety Report 15922332 (Version 1)
Quarter: 2019Q1

REPORT INFORMATION
  Report Type: Spontaneous
  Country: US (occurrence: US)
  Receive Date: 20190206
  Receipt Date: 20190206
  Transmission Date: 20190417
  Serious: Yes (Other)
  Sender: FDA-Public Use
  Company Number: US-ROCHE-2257325

PATIENT
  Sex: Female
  Weight: 69.01 kg

DRUGS (6)
  1. HYDROCHLOROTHIAZIDE. [Concomitant]
     Active Substance: HYDROCHLOROTHIAZIDE
     Indication: HYPERTENSION
     Route: 065
  2. XELODA [Suspect]
     Active Substance: CAPECITABINE
     Indication: COLON CANCER
     Route: 048
     Dates: start: 20180825, end: 20180901
  3. XELODA [Suspect]
     Active Substance: CAPECITABINE
     Dosage: TWO 500MG TABLETS 2X^S DAY
     Route: 048
     Dates: start: 20180920, end: 20181017
  4. XELODA [Suspect]
     Active Substance: CAPECITABINE
     Dosage: 1500 MG IN THE MORNING 1000MG AT NIGHT
     Route: 048
     Dates: start: 20190124
  5. LISINOPRIL. [Concomitant]
     Active Substance: LISINOPRIL
     Indication: HYPERTENSION
     Route: 065
  6. XELODA [Suspect]
     Active Substance: CAPECITABINE
     Dosage: TWO 500 MG TABLETS 2X^S DAY
     Route: 048
     Dates: start: 20190103, end: 20190124

REACTIONS (4)
  - Chyluria [Recovered/Resolved]
  - Chest pain [Recovered/Resolved]
  - Palpitations [Recovered/Resolved]
  - Heart rate irregular [Recovered/Resolved]
